FAERS Safety Report 6093806-7 (Version None)
Quarter: 2009Q1

REPORT INFORMATION
  Report Type: 
  Country: None (occurrence: None)
  Receive Date: 20090226
  Receipt Date: 20090220
  Transmission Date: 20090719
  Serious: Yes (Hospitalization)
  Sender: FDA-Public Use
  Company Number: TR-ELI_LILLY_AND_COMPANY-TR200902005667

PATIENT
  Sex: Female

DRUGS (2)
  1. HUMALOG [Suspect]
     Indication: DIABETES MELLITUS
     Dosage: 8 U, 3/D
     Route: 058
  2. LANTUS [Concomitant]
     Indication: DIABETES MELLITUS
     Dosage: 10 U, 2/D
     Route: 058

REACTIONS (2)
  - BLOOD GLUCOSE INCREASED [None]
  - PAIN IN EXTREMITY [None]
